FAERS Safety Report 9677465 (Version 3)
Quarter: 2013Q4

REPORT INFORMATION
  Report Type: Report from Study
  Country: US (occurrence: US)
  Receive Date: 20131108
  Receipt Date: 20131204
  Transmission Date: 20140711
  Serious: Yes (Hospitalization)
  Sender: FDA-Public Use
  Company Number: PHEH2013US022857

PATIENT
  Age: 30 Year
  Sex: Female
  Weight: 113.38 kg

DRUGS (1)
  1. GILENYA [Suspect]
     Indication: MULTIPLE SCLEROSIS
     Dosage: 0.5 MG, QD
     Route: 048
     Dates: start: 20130808

REACTIONS (7)
  - Chest pain [Recovering/Resolving]
  - Multiple sclerosis relapse [Recovering/Resolving]
  - Headache [Recovering/Resolving]
  - Migraine [Not Recovered/Not Resolved]
  - Eye pain [Recovering/Resolving]
  - Vision blurred [Recovering/Resolving]
  - Memory impairment [Recovering/Resolving]
